FAERS Safety Report 4312574-X (Version None)
Quarter: 2004Q1

REPORT INFORMATION
  Report Type: 
  Country: None (occurrence: None)
  Receive Date: 20040303
  Receipt Date: 20040223
  Transmission Date: 20041129
  Serious: Yes (Death, Hospitalization)
  Sender: FDA-Public Use
  Company Number: US-JNJFOC-20040103808

PATIENT
  Age: 59 Year
  Sex: Female
  Weight: 78.2455 kg

DRUGS (13)
  1. REMICADE [Suspect]
     Indication: TAKAYASU'S ARTERITIS
     Dosage: 400 MG, INTRAVENOUS
     Route: 042
     Dates: start: 20031120, end: 20031120
  2. LASIX [Concomitant]
  3. COUMADIN [Concomitant]
  4. ALLOPURINOL [Concomitant]
  5. CARDURA [Concomitant]
  6. DARVOCET (PROPACET) [Concomitant]
  7. FOSAMAX [Concomitant]
  8. IMDUR [Concomitant]
  9. LIPITOR [Concomitant]
  10. PREDNISONE [Concomitant]
  11. VERAPAMIL [Concomitant]
  12. ZESTRIL [Concomitant]
  13. PROCRIT (ERYTHROPOIETIN) [Concomitant]

REACTIONS (3)
  - DYSPNOEA [None]
  - HAEMORRHAGE INTRACRANIAL [None]
  - HEADACHE [None]
